FAERS Safety Report 14519146 (Version 1)
Quarter: 2018Q1

REPORT INFORMATION
  Report Type: Spontaneous
  Country: UM (occurrence: UM)
  Receive Date: 20180209
  Receipt Date: 20180209
  Transmission Date: 20180509
  Serious: No
  Sender: FDA-Public Use
  Company Number: None

PATIENT
  Age: 44 Year
  Sex: Female
  Weight: 49.5 kg

DRUGS (5)
  1. ACZONE [Suspect]
     Active Substance: DAPSONE
     Indication: ACNE
     Route: 061
  2. MAGNESIUM [Concomitant]
     Active Substance: MAGNESIUM
  3. TURMERIC [Concomitant]
     Active Substance: HERBALS\TURMERIC
  4. VITAMIN D3 [Concomitant]
     Active Substance: CHOLECALCIFEROL
  5. IRON [Concomitant]
     Active Substance: IRON

REACTIONS (6)
  - Swelling face [None]
  - Urticaria [None]
  - Contraindicated product administered [None]
  - Application site dryness [None]
  - Contraindicated drug prescribed [None]
  - Application site erythema [None]

NARRATIVE: CASE EVENT DATE: 20180127
